FAERS Safety Report 5518413-3 (Version None)
Quarter: 2007Q4

REPORT INFORMATION
  Report Type: 
  Country: None (occurrence: None)
  Receive Date: 20071113
  Receipt Date: 20071030
  Transmission Date: 20080405
  Serious: Yes (Life-Threatening, Hospitalization)
  Sender: FDA-Public Use
  Company Number: GXKR2007DE09383

PATIENT
  Age: 39 Year
  Sex: Female

DRUGS (8)
  1. PARACETAMOL [Suspect]
     Dosage: 1000 MG, QID
  2. PENICILLIN V [Suspect]
     Indication: PYREXIA
     Dosage: ORAL
     Route: 048
  3. PIPERACILLIN+TAZOBACTAM (NGX)(PIPERACILLIN, TAZOBACTAM) UNKNOWN [Suspect]
     Dosage: INTRAVENOUS
     Route: 042
  4. CLARITHROMYCIN [Suspect]
     Indication: PYREXIA
     Dosage: INTRAVENOUS
     Route: 042
  5. CEFTRIAXONE [Suspect]
     Indication: PYREXIA
     Dosage: INTRAVENOUS
     Route: 042
  6. IBUPROFEN [Suspect]
     Dosage: 600 MG, TID
  7. NSAID'S(NO INGREDIENTS/SUBTANCES) [Suspect]
  8. ANTIHISTAMINES (NO INGREDIENT/SUBSTANCES) [Concomitant]

REACTIONS (11)
  - ACUTE HEPATIC FAILURE [None]
  - ARTHRALGIA [None]
  - CHOLANGITIS [None]
  - COAGULOPATHY [None]
  - DRUG TOXICITY [None]
  - DYSPHAGIA [None]
  - HEPATITIS [None]
  - HEPATOSPLENOMEGALY [None]
  - LEUKOCYTOSIS [None]
  - MYALGIA [None]
  - RASH MACULO-PAPULAR [None]
